FAERS Safety Report 12740086 (Version 3)
Quarter: 2016Q4

REPORT INFORMATION
  Report Type: Spontaneous
  Country: JP (occurrence: JP)
  Receive Date: 20160913
  Receipt Date: 20161014
  Transmission Date: 20170207
  Serious: Yes (Life-Threatening, Hospitalization, Other)
  Sender: FDA-Public Use
  Company Number: JP-GLAXOSMITHKLINE-JP2015JPN168649

PATIENT
  Age: 77 Year
  Sex: Male
  Weight: 65 kg

DRUGS (10)
  1. E KEPPRA [Concomitant]
     Active Substance: LEVETIRACETAM
     Dosage: 500 MG, BID
  2. LAMICTAL [Suspect]
     Active Substance: LAMOTRIGINE
     Dosage: 50 MG, QID
     Route: 048
     Dates: start: 20141216, end: 20150108
  3. LAMICTAL [Suspect]
     Active Substance: LAMOTRIGINE
     Dosage: 25 MG, BID
     Route: 048
     Dates: start: 20141202, end: 20141215
  4. GLIADEL [Concomitant]
     Active Substance: CARMUSTINE
     Dosage: UNK
     Dates: start: 20141127
  5. TEMODAL [Suspect]
     Active Substance: TEMOZOLOMIDE
     Indication: GLIOBLASTOMA
     Dosage: 120 MG, QD
     Route: 048
     Dates: start: 20141216
  6. RINDERON V [Concomitant]
     Active Substance: BETAMETHASONE VALERATE
     Dosage: 1 MG, BID
  7. BAKTAR [Concomitant]
     Active Substance: SULFAMETHOXAZOLE\TRIMETHOPRIM
     Dosage: UNK
  8. LAMICTAL [Suspect]
     Active Substance: LAMOTRIGINE
     Indication: CONVULSION PROPHYLAXIS
     Dosage: 25 MG, QD
     Route: 048
     Dates: start: 20141118, end: 20141201
  9. LAMICTAL [Suspect]
     Active Substance: LAMOTRIGINE
     Dosage: 100 MG, BID
     Route: 048
     Dates: start: 20150109, end: 20150225
  10. NAUZELIN [Concomitant]
     Active Substance: DOMPERIDONE
     Dosage: UNK

REACTIONS (8)
  - Neutropenia [Recovered/Resolved]
  - White blood cell count decreased [Recovering/Resolving]
  - Anal incontinence [Unknown]
  - Urinary incontinence [Unknown]
  - Loss of consciousness [Recovered/Resolved]
  - Seizure [Recovered/Resolved]
  - Disorientation [Unknown]
  - Somnolence [Unknown]

NARRATIVE: CASE EVENT DATE: 20150213
